FAERS Safety Report 18352246 (Version 2)
Quarter: 2020Q4

REPORT INFORMATION
  Report Type: Spontaneous
  Country: RS (occurrence: RS)
  Receive Date: 20201006
  Receipt Date: 20201014
  Transmission Date: 20210114
  Serious: Yes (Other)
  Sender: FDA-Public Use
  Company Number: RS-JNJFOC-20200933950

PATIENT
  Age: 28 Year
  Sex: Male

DRUGS (4)
  1. RISPOLEPT CONSTA [Suspect]
     Active Substance: RISPERIDONE
  2. RISPOLEPT CONSTA [Suspect]
     Active Substance: RISPERIDONE
  3. RISPOLEPT CONSTA [Suspect]
     Active Substance: RISPERIDONE
  4. RISPOLEPT CONSTA [Suspect]
     Active Substance: RISPERIDONE
     Indication: SCHIZOPHRENIA
     Route: 030
     Dates: start: 202001

REACTIONS (2)
  - Paranoia [Not Recovered/Not Resolved]
  - Drug level below therapeutic [Unknown]

NARRATIVE: CASE EVENT DATE: 2020
